FAERS Safety Report 15711227 (Version 2)
Quarter: 2018Q4

REPORT INFORMATION
  Report Type: Spontaneous
  Country: KR (occurrence: KR)
  Receive Date: 20181211
  Receipt Date: 20181214
  Transmission Date: 20190205
  Serious: Yes (Death, Hospitalization, Other)
  Sender: FDA-Public Use
  Company Number: KR-009507513-1812KOR002619

PATIENT
  Age: 67 Year
  Sex: Male

DRUGS (22)
  1. FLAGYL [Concomitant]
     Active Substance: METRONIDAZOLE\METRONIDAZOLE HYDROCHLORIDE
     Dosage: 500 MILLIGRAM
  2. HEPARIN SODIUM. [Concomitant]
     Active Substance: HEPARIN SODIUM
  3. DEXTROSE. [Concomitant]
     Active Substance: DEXTROSE
     Dosage: 50 UNK
  4. HELPOVIN [Concomitant]
  5. MVH INJECTION [Concomitant]
  6. KEYTRUDA [Suspect]
     Active Substance: PEMBROLIZUMAB
     Indication: MALIGNANT NEOPLASM OF AMPULLA OF VATER
  7. DEXAMETHASONE SODIUM PHOSPHATE. [Concomitant]
     Active Substance: DEXAMETHASONE SODIUM PHOSPHATE
  8. SODIUM CHLORIDE. [Concomitant]
     Active Substance: SODIUM CHLORIDE
     Dosage: 50 MILLILITER
  9. PANTOLOC [Concomitant]
     Active Substance: PANTOPRAZOLE SODIUM
  10. MG COMBI PERI 1 [Concomitant]
  11. DEXTROSE. [Concomitant]
     Active Substance: DEXTROSE
     Dosage: 200 MILLILITER
  12. SODIUM CHLORIDE. [Concomitant]
     Active Substance: SODIUM CHLORIDE
     Dosage: 100 MILLILITER
  13. SODIUM CHLORIDE. [Concomitant]
     Active Substance: SODIUM CHLORIDE
     Dosage: 20 MILLILITER
  14. PENIRAMIN [Concomitant]
  15. DICLON (DICLOFENAC DEANOL) [Concomitant]
  16. POTASSIUM CHLORIDE. [Concomitant]
     Active Substance: POTASSIUM CHLORIDE
  17. SODIUM CHLORIDE. [Concomitant]
     Active Substance: SODIUM CHLORIDE
     Dosage: 250 MILLILITER
  18. FURTMAN [Concomitant]
     Dosage: 2 MILLILITER
  19. HYSPAN [Concomitant]
  20. PERIDOL (HALOPERIDOL) [Concomitant]
     Dosage: 5MG/ML
  21. KEYTRUDA [Suspect]
     Active Substance: PEMBROLIZUMAB
     Indication: CHOLANGIOCARCINOMA
     Dosage: QUANTITY: 1, DAYS: 1
     Dates: start: 20180917
  22. MUCOSTEN [Concomitant]
     Dosage: 300MG/2ML

REACTIONS (2)
  - Malignant neoplasm progression [Fatal]
  - Product use in unapproved indication [Unknown]

NARRATIVE: CASE EVENT DATE: 2018
